FAERS Safety Report 24607299 (Version 3)
Quarter: 2025Q1

REPORT INFORMATION
  Report Type: Report from Study
  Country: CA (occurrence: CA)
  Receive Date: 20241112
  Receipt Date: 20250128
  Transmission Date: 20250409
  Serious: Yes (Life-Threatening, Hospitalization, Other)
  Sender: GLAXOSMITHKLINE
  Company Number: CA-GSK-CA2024119751

PATIENT

DRUGS (10)
  1. DOSTARLIMAB [Suspect]
     Active Substance: DOSTARLIMAB
     Indication: Endometrial cancer
     Dosage: 500 MG, Q3W FOR DOSE 1-6
     Dates: start: 20240926
  2. DOSTARLIMAB [Suspect]
     Active Substance: DOSTARLIMAB
     Dosage: 1000 MG, Q6W
  3. DOSTARLIMAB [Suspect]
     Active Substance: DOSTARLIMAB
  4. IRBESARTAN [Concomitant]
     Active Substance: IRBESARTAN
     Indication: Product used for unknown indication
  5. RAMIPRIL [Concomitant]
     Active Substance: RAMIPRIL
     Indication: Product used for unknown indication
  6. METFORMIN [Concomitant]
     Active Substance: METFORMIN HYDROCHLORIDE
     Indication: Product used for unknown indication
  7. ROSUVASTATIN [Concomitant]
     Active Substance: ROSUVASTATIN
     Indication: Product used for unknown indication
  8. POTASSIUM [Concomitant]
     Active Substance: POTASSIUM
     Indication: Product used for unknown indication
  9. INCRUSE ELLIPTA [Concomitant]
     Active Substance: UMECLIDINIUM BROMIDE
     Indication: Product used for unknown indication
  10. SYMBICORT [Concomitant]
     Active Substance: BUDESONIDE\FORMOTEROL FUMARATE DIHYDRATE
     Indication: Product used for unknown indication

REACTIONS (20)
  - Cognitive disorder [Unknown]
  - Febrile neutropenia [Unknown]
  - Pneumonia [Recovered/Resolved]
  - Hypoxia [Unknown]
  - Haematoma [Unknown]
  - Nasopharyngitis [Recovered/Resolved]
  - Mucosal inflammation [Unknown]
  - Diarrhoea [Unknown]
  - Fatigue [Unknown]
  - Pain [Unknown]
  - Dry mouth [Unknown]
  - Vomiting [Unknown]
  - Nausea [Unknown]
  - Full blood count abnormal [Recovered/Resolved]
  - Rhinorrhoea [Unknown]
  - Dyspnoea [Unknown]
  - Upper respiratory tract infection [Unknown]
  - Dizziness [Not Recovered/Not Resolved]
  - Product dose omission issue [Unknown]
  - Inappropriate schedule of product administration [Unknown]

NARRATIVE: CASE EVENT DATE: 20240926
